FAERS Safety Report 26173649 (Version 2)
Quarter: 2025Q4

REPORT INFORMATION
  Report Type: Report from Study
  Country: AR (occurrence: AR)
  Receive Date: 20251218
  Receipt Date: 20251230
  Transmission Date: 20260117
  Serious: Yes (Hospitalization, Other)
  Sender: NOVARTIS
  Company Number: AR-002147023-NVSC2025AR131582

PATIENT
  Sex: Female

DRUGS (5)
  1. KISQALI [Suspect]
     Active Substance: RIBOCICLIB SUCCINATE
     Indication: Breast cancer metastatic
     Dosage: 600 MG, QD
     Route: 048
     Dates: start: 20240610
  2. KISQALI [Suspect]
     Active Substance: RIBOCICLIB SUCCINATE
     Dosage: 2 DOSAGE FORM QD (400), (FOR THE PAST 6 MONTHS)
     Route: 048
  3. KISQALI [Suspect]
     Active Substance: RIBOCICLIB SUCCINATE
     Dosage: UNK, OTHER
     Route: 048
  4. FEMARA [Suspect]
     Active Substance: LETROZOLE
     Indication: Breast cancer metastatic
     Dosage: 2.5 MG, QD
     Route: 048
     Dates: start: 20240610
  5. FEMARA [Suspect]
     Active Substance: LETROZOLE
     Dosage: UNK, OTHER
     Route: 048

REACTIONS (9)
  - Metastases to kidney [Unknown]
  - Breast cancer metastatic [Unknown]
  - Malignant neoplasm progression [Unknown]
  - Wrist fracture [Unknown]
  - Liver disorder [Unknown]
  - Renal impairment [Unknown]
  - Fall [Unknown]
  - Poor venous access [Unknown]
  - Gait inability [Unknown]

NARRATIVE: CASE EVENT DATE: 20240101
